FAERS Safety Report 21820694 (Version 1)
Quarter: 2023Q1

REPORT INFORMATION
  Report Type: Spontaneous
  Country: US (occurrence: US)
  Receive Date: 20230105
  Receipt Date: 20230105
  Transmission Date: 20230418
  Serious: Yes (Hospitalization)
  Sender: FDA-Public Use
  Company Number: US-BIOVITRUM-2023US00154

PATIENT
  Sex: Male
  Weight: 6 kg

DRUGS (6)
  1. SYNAGIS [Suspect]
     Active Substance: PALIVIZUMAB
     Indication: Low birth weight baby
     Dates: start: 202212
  2. IRON [Concomitant]
     Active Substance: IRON
     Dosage: 159(45)MG TABLET ER
  3. VITAMIN D2 [Concomitant]
     Active Substance: ERGOCALCIFEROL
     Dosage: 1250 MCG CAPSULE
  4. FLUTICASONE PROPIONATE [Concomitant]
     Active Substance: FLUTICASONE PROPIONATE
  5. SYNAGIS [Suspect]
     Active Substance: PALIVIZUMAB
     Indication: Bronchopulmonary dysplasia
  6. SYNAGIS [Suspect]
     Active Substance: PALIVIZUMAB
     Indication: Premature baby

REACTIONS (1)
  - Viral infection [Unknown]
